FAERS Safety Report 17916121 (Version 1)
Quarter: 2020Q2

REPORT INFORMATION
  Report Type: Spontaneous
  Country: CA (occurrence: CA)
  Receive Date: 20200619
  Receipt Date: 20200619
  Transmission Date: 20200714
  Serious: Yes (Death, Other)
  Sender: FDA-Public Use
  Company Number: CA-FRESENIUS KABI-FK202006046

PATIENT
  Age: 66 Year
  Sex: Male

DRUGS (4)
  1. BLEOMYCIN [Suspect]
     Active Substance: BLEOMYCIN SULFATE
     Indication: HODGKIN^S DISEASE
     Route: 065
  2. VINBLASTINE SULFATE. [Concomitant]
     Active Substance: VINBLASTINE SULFATE
     Indication: PRODUCT USED FOR UNKNOWN INDICATION
     Route: 065
  3. DOXORUBICIN HYDROCHLORIDE. [Concomitant]
     Active Substance: DOXORUBICIN HYDROCHLORIDE
     Indication: PRODUCT USED FOR UNKNOWN INDICATION
     Route: 065
  4. DACARBAZINE. [Concomitant]
     Active Substance: DACARBAZINE
     Indication: PRODUCT USED FOR UNKNOWN INDICATION
     Dosage: DACARBAZINE FOR INJECTION BP?POWDER FOR SOLUTION INTRAVENOUS
     Route: 065

REACTIONS (1)
  - Pulmonary toxicity [Fatal]
